FAERS Safety Report 9850540 (Version 1)
Quarter: 2013Q4

REPORT INFORMATION
  Report Type: Spontaneous
  Country: US (occurrence: None)
  Receive Date: 20131226
  Receipt Date: 20131226
  Transmission Date: 20140711
  Serious: Yes (Other)
  Sender: FDA-Public Use
  Company Number: PHEH2013US004512

PATIENT
  Age: 76 Year
  Sex: Female

DRUGS (8)
  1. VIVELLE DOT [Suspect]
     Route: 062
  2. AMLODIPINE (AMLODIPINE) [Suspect]
  3. NAMENDA (MEMANTINE HYDROCHLORIDE) [Concomitant]
  4. LEVOTHYROXINE (LEVOTHYROXINE) [Concomitant]
  5. PRAVASTATIN (PRAVASTATIN) [Concomitant]
  6. TRAZODONE (TRAZODONE) [Concomitant]
  7. MELATONIN (MELATONIN) [Concomitant]
  8. ANTICOAGULANTS (ANTICOAGULANTS) [Concomitant]

REACTIONS (2)
  - Transient ischaemic attack [None]
  - Blood pressure decreased [None]
